FAERS Safety Report 5388703-6 (Version None)
Quarter: 2007Q3

REPORT INFORMATION
  Report Type: 
  Country: None (occurrence: None)
  Receive Date: 20070716
  Receipt Date: 20070705
  Transmission Date: 20080115
  Serious: Yes (Other)
  Sender: FDA-Public Use
  Company Number: CI-GILEAD-2007-0012413

PATIENT
  Sex: Female
  Weight: 66 kg

DRUGS (9)
  1. EMTRICITABINE/TENOFOVIR DISOPROXIL FUMARATE [Suspect]
     Indication: HIV INFECTION
     Dates: start: 20070221, end: 20070227
  2. EMTRICITABINE/TENOFOVIR DISOPROXIL FUMARATE [Suspect]
     Dates: start: 20070220, end: 20070220
  3. ZIDOVUDINE [Suspect]
     Indication: HIV INFECTION
     Dates: start: 20070103, end: 20070220
  4. COTRIM [Concomitant]
     Indication: OPPORTUNISTIC INFECTION PROPHYLAXIS
     Dates: start: 20070103
  5. NEVIRAPINE [Concomitant]
     Indication: HIV INFECTION
     Dates: start: 20070220, end: 20070220
  6. AMOXICILLIN [Concomitant]
     Dates: start: 20070221, end: 20070227
  7. MULTI-VITAMIN [Concomitant]
     Dates: start: 20070103
  8. IRON [Concomitant]
     Indication: ANAEMIA PROPHYLAXIS
     Dates: start: 20070103
  9. FOLIC ACID [Concomitant]
     Indication: ANAEMIA PROPHYLAXIS
     Dates: start: 20070103

REACTIONS (4)
  - DRUG EXPOSURE DURING PREGNANCY [None]
  - LEUKOPENIA [None]
  - NEUTROPENIA [None]
  - PREGNANCY [None]
